FAERS Safety Report 16154433 (Version 5)
Quarter: 2019Q2

REPORT INFORMATION
  Report Type: Spontaneous
  Country: IT (occurrence: IT)
  Receive Date: 20190403
  Receipt Date: 20190607
  Transmission Date: 20190711
  Serious: Yes (Other)
  Sender: FDA-Public Use
  Company Number: IT-ACCORD-117807

PATIENT
  Age: 18 Year
  Sex: Female

DRUGS (4)
  1. CISPLATIN ACCORD HEALTHCARE ITALY [Suspect]
     Active Substance: CISPLATIN
     Indication: MEDULLOBLASTOMA
     Dosage: STRENGTH: 1 MG/ML, CONCENTRATE FOR SOLUTION
     Route: 041
     Dates: start: 20170715, end: 20190129
  2. VINCRISTINE TEVA ITALY [Suspect]
     Active Substance: VINCRISTINE
     Indication: MEDULLOBLASTOMA
     Dosage: STRENGTH: 1 MG/ML
     Route: 042
     Dates: start: 20170701, end: 20190129
  3. LOMUSTINE. [Suspect]
     Active Substance: LOMUSTINE
     Indication: MEDULLOBLASTOMA
     Route: 041
     Dates: start: 20170715, end: 20190129
  4. VINCRISTINE [Suspect]
     Active Substance: VINCRISTINE
     Indication: MEDULLOBLASTOMA
     Route: 041
     Dates: start: 20170715, end: 20190129

REACTIONS (2)
  - Lymphopenia [Recovering/Resolving]
  - Anaemia [Recovering/Resolving]

NARRATIVE: CASE EVENT DATE: 20170801
